FAERS Safety Report 4523565-8 (Version None)
Quarter: 2004Q4

REPORT INFORMATION
  Report Type: 
  Country: None (occurrence: None)
  Receive Date: 20041210
  Receipt Date: 20041207
  Transmission Date: 20050328
  Serious: Yes (Other)
  Sender: FDA-Public Use
  Company Number: FR-ROCHE-388337

PATIENT
  Age: 36 Year
  Sex: Female

DRUGS (2)
  1. LOXEN LP [Suspect]
     Route: 048
     Dates: start: 20040615, end: 20040615
  2. BROMO-KIN [Suspect]
     Indication: LACTATION DISORDER
     Route: 048
     Dates: start: 20040615

REACTIONS (3)
  - DRUG EXPOSURE DURING PREGNANCY [None]
  - INTRACRANIAL PRESSURE INCREASED [None]
  - PAPILLOEDEMA [None]
